FAERS Safety Report 11081847 (Version 4)
Quarter: 2015Q3

REPORT INFORMATION
  Report Type: Spontaneous
  Country: US (occurrence: US)
  Receive Date: 20150501
  Receipt Date: 20150717
  Transmission Date: 20151125
  Serious: Yes (Hospitalization, Disabling, Other)
  Sender: FDA-Public Use
  Company Number: US-009507513-1201USA00404

PATIENT
  Sex: Female
  Weight: 68.27 kg

DRUGS (6)
  1. FOSAMAX [Suspect]
     Active Substance: ALENDRONATE SODIUM
     Indication: OSTEOPOROSIS
  2. ALENDRONATE SODIUM. [Suspect]
     Active Substance: ALENDRONATE SODIUM
     Indication: OSTEOPENIA
     Dosage: UNK
     Route: 048
     Dates: start: 20081106, end: 20100607
  3. ALENDRONATE SODIUM. [Suspect]
     Active Substance: ALENDRONATE SODIUM
     Indication: OSTEOPOROSIS
  4. ALENDRONATE SODIUM. [Suspect]
     Active Substance: ALENDRONATE SODIUM
     Indication: OSTEOPOROSIS
  5. FOSAMAX [Suspect]
     Active Substance: ALENDRONATE SODIUM
     Indication: OSTEOPENIA
     Dosage: 70 MG, QW
     Route: 048
     Dates: start: 20031219, end: 20060622
  6. ALENDRONATE SODIUM. [Suspect]
     Active Substance: ALENDRONATE SODIUM
     Indication: OSTEOPENIA
     Dosage: 70 MG, QW
     Route: 048
     Dates: start: 20080409, end: 20140409

REACTIONS (56)
  - Ilium fracture [Not Recovered/Not Resolved]
  - Wound closure [Unknown]
  - Debridement [Unknown]
  - Depression [Unknown]
  - Hyperlipidaemia [Unknown]
  - Diverticular perforation [Unknown]
  - Intervertebral disc disorder [Unknown]
  - Nausea [Unknown]
  - Pain in extremity [Unknown]
  - Injury associated with device [Unknown]
  - Debridement [Unknown]
  - Procedural haemorrhage [Unknown]
  - Haemorrhagic anaemia [Unknown]
  - Hypovolaemia [Unknown]
  - Cancer surgery [Unknown]
  - Biopsy trachea [Unknown]
  - Nerve injury [Unknown]
  - Limb asymmetry [Unknown]
  - Hyponatraemia [Recovered/Resolved]
  - Joint instability [Unknown]
  - Drain placement [Unknown]
  - Device dislocation [Unknown]
  - Osteoporosis [Not Recovered/Not Resolved]
  - Seizure [Unknown]
  - Device dislocation [Unknown]
  - Hip arthroplasty [Unknown]
  - Wound dehiscence [Unknown]
  - Squamous cell carcinoma of the oral cavity [Unknown]
  - Back pain [Unknown]
  - Haemorrhagic anaemia [Recovered/Resolved]
  - Device related infection [Unknown]
  - Bone graft [Recovered/Resolved]
  - Device related infection [Unknown]
  - Knee deformity [Unknown]
  - Hypertension [Unknown]
  - Bone disorder [Unknown]
  - Chondropathy [Unknown]
  - Hyperchlorhydria [Unknown]
  - Debridement [Unknown]
  - Hip arthroplasty [Unknown]
  - Knee arthroplasty [Unknown]
  - Low turnover osteopathy [Not Recovered/Not Resolved]
  - Lip and/or oral cavity cancer [Unknown]
  - Post procedural complication [Unknown]
  - Extraskeletal ossification [Unknown]
  - Paraesthesia [Unknown]
  - Wound closure [Unknown]
  - Loss of anatomical alignment after fracture reduction [Unknown]
  - Hip arthroplasty [Unknown]
  - Oropharyngeal neoplasm benign [Unknown]
  - Hypoaesthesia [Unknown]
  - Intramedullary rod insertion [Unknown]
  - Acetabulum fracture [Not Recovered/Not Resolved]
  - Femur fracture [Recovered/Resolved]
  - Large intestine polyp [Unknown]
  - Arthralgia [Unknown]

NARRATIVE: CASE EVENT DATE: 200702
